FAERS Safety Report 6517823-5 (Version None)
Quarter: 2009Q4

REPORT INFORMATION
  Report Type: 
  Country: None (occurrence: None)
  Receive Date: 20091218
  Receipt Date: 20091215
  Transmission Date: 20100525
  Serious: Yes (Death)
  Sender: FDA-Public Use
  Company Number: 449496

PATIENT
  Age: 84 Year

DRUGS (2)
  1. SODIUM CHLORIDE 0.9% [Suspect]
     Indication: DRUG USE FOR UNKNOWN INDICATION
     Dosage: 100 ML, 1 DAY
     Dates: start: 20091205, end: 20091205
  2. MORPHINE [Suspect]
     Indication: DRUG USE FOR UNKNOWN INDICATION
     Dates: start: 20091205, end: 20091205

REACTIONS (4)
  - MEDICAL DEVICE COMPLICATION [None]
  - OVERDOSE [None]
  - PRODUCT FORMULATION ISSUE [None]
  - REFUSAL OF TREATMENT BY RELATIVE [None]
